FAERS Safety Report 9088851 (Version 1)
Quarter: 2013Q1

REPORT INFORMATION
  Report Type: Spontaneous
  Country: DE (occurrence: DE)
  Receive Date: 20130201
  Receipt Date: 20130201
  Transmission Date: 20140127
  Serious: Yes (Hospitalization)
  Sender: FDA-Public Use
  Company Number: GXKR2013DE000735

PATIENT
  Age: 74 Year
  Sex: Male
  Weight: 74 kg

DRUGS (11)
  1. ACETYLSALICYLIC ACID [Suspect]
     Indication: ATRIAL FIBRILLATION
     Dosage: 100 MG, QD
     Route: 048
     Dates: end: 20120917
  2. XARELTO [Interacting]
     Indication: ATRIAL FIBRILLATION
     Dosage: 15 MG, QD
     Route: 048
     Dates: start: 20120913, end: 20120917
  3. PANTOZOL [Concomitant]
     Dosage: 40 MG, QD
     Route: 048
  4. DIGIMERCK [Concomitant]
     Dosage: 0.07 MG, QD
     Route: 048
  5. HCT [Concomitant]
     Indication: HYPERTENSION
     Dosage: 25 MG, BID
     Route: 048
  6. LASIX [Concomitant]
     Dosage: 40 MG, QD (AS NEEDED)
     Route: 048
  7. NORVASC [Concomitant]
     Dosage: 5 MG, QD
     Route: 048
  8. ISOPTIN [Concomitant]
     Indication: HYPERTENSION
     Dosage: 120 MG, TID
     Route: 048
  9. DELIX [Concomitant]
     Indication: HYPERTENSION
     Dosage: 2.5 MG, BID
     Route: 048
  10. SIMVASTATIN [Concomitant]
     Dosage: 10 MG, QD
     Route: 048
  11. ZYLORIC [Concomitant]
     Dosage: 300 MG, QD
     Route: 048

REACTIONS (3)
  - Thrombocytopenia [Recovering/Resolving]
  - Lower gastrointestinal haemorrhage [Recovering/Resolving]
  - Haematochezia [Recovering/Resolving]
